FAERS Safety Report 7818865-X (Version None)
Quarter: 2011Q4

REPORT INFORMATION
  Report Type: 
  Country: None (occurrence: None)
  Receive Date: 20111017
  Receipt Date: 20111017
  Transmission Date: 20120403
  Serious: Yes (Disabling)
  Sender: FDA-Public Use
  Company Number: None

PATIENT
  Sex: Female
  Weight: 57.6068 kg

DRUGS (3)
  1. LEVOXYL [Concomitant]
  2. ADDERALL 5 [Concomitant]
  3. VENLAFAXINE HCL EXTENDED-RELEASE [Suspect]
     Indication: POST-TRAUMATIC STRESS DISORDER
     Dosage: 37.5MG ER CAPSULE 1 QAM ORAL
     Route: 048
     Dates: start: 20101101, end: 20101201

REACTIONS (9)
  - PALPITATIONS [None]
  - HYPERSOMNIA [None]
  - IRRITABILITY [None]
  - INCREASED APPETITE [None]
  - FATIGUE [None]
  - LIBIDO DECREASED [None]
  - ASTHENIA [None]
  - HEADACHE [None]
  - DEPRESSION [None]
